FAERS Safety Report 8126554-X (Version None)
Quarter: 2012Q1

REPORT INFORMATION
  Report Type: 
  Country: None (occurrence: None)
  Receive Date: 20120210
  Receipt Date: 20120131
  Transmission Date: 20120608
  Serious: Yes (Other)
  Sender: FDA-Public Use
  Company Number: BR-AMGEN-BRASP2012007694

PATIENT
  Age: 54 Year
  Sex: Female
  Weight: 68 kg

DRUGS (4)
  1. PRELONE [Concomitant]
     Dosage: 5 MG, UNK
  2. ADDERA D3 [Concomitant]
     Dosage: UNK
  3. ENBREL [Suspect]
     Indication: RHEUMATOID ARTHRITIS
     Dosage: 50 MG, 1X/WEEK
     Route: 058
     Dates: start: 20110802, end: 20110902
  4. PROFLAM [Concomitant]
     Dosage: UNK

REACTIONS (6)
  - HEADACHE [None]
  - AGEUSIA [None]
  - WEIGHT INCREASED [None]
  - VOMITING [None]
  - HYPERSENSITIVITY [None]
  - GINGIVITIS [None]
